FAERS Safety Report 4896949-6 (Version None)
Quarter: 2006Q1

REPORT INFORMATION
  Report Type: 
  Country: None (occurrence: None)
  Receive Date: 20060127
  Receipt Date: 20060110
  Transmission Date: 20060701
  Serious: Yes (Hospitalization, Other)
  Sender: FDA-Public Use
  Company Number: FR_050506381

PATIENT
  Age: 45 Year
  Sex: Male
  Weight: 60 kg

DRUGS (3)
  1. PROZAC [Suspect]
     Indication: ANXIETY
     Dosage: 20 MG, DAILY (1/D), (ORAL)
     Route: 048
     Dates: end: 20050420
  2. ACECLOFENAC (ACECLOFENAC) [Concomitant]
  3. VESADOL (BUZEPIDE METIODIDE, HALOPERIDOL) [Concomitant]

REACTIONS (4)
  - AGRANULOCYTOSIS [None]
  - AUTOIMMUNE DISORDER [None]
  - FEBRILE BONE MARROW APLASIA [None]
  - HYPERTHYROIDISM [None]
